FAERS Safety Report 12701063 (Version 1)
Quarter: 2016Q3

REPORT INFORMATION
  Report Type: Spontaneous
  Country: US (occurrence: None)
  Receive Date: 20160830
  Receipt Date: 20160830
  Transmission Date: 20161109
  Serious: Yes (Other)
  Sender: FDA-Public Use
  Company Number: None

PATIENT
  Age: 58 Year
  Sex: Female
  Weight: 68.04 kg

DRUGS (5)
  1. VALIUM [Concomitant]
     Active Substance: DIAZEPAM
  2. ADVIL [Concomitant]
     Active Substance: IBUPROFEN
  3. FLAGYL [Suspect]
     Active Substance: METRONIDAZOLE\METRONIDAZOLE HYDROCHLORIDE
     Indication: CLOSTRIDIUM DIFFICILE INFECTION
     Dosage: 1 CAPSULE(S) THREE TIMES A DAY TAKEN BY MOUTH
     Route: 048
  4. ESSENTIAL HOLISTIC OILS [Concomitant]
  5. ALLERGY SHOTS [Concomitant]
     Active Substance: UNSPECIFIED INGREDIENT

REACTIONS (2)
  - Foot fracture [None]
  - Hypoaesthesia [None]

NARRATIVE: CASE EVENT DATE: 20160826
